FAERS Safety Report 11168470 (Version 3)
Quarter: 2015Q4

REPORT INFORMATION
  Report Type: Spontaneous
  Country: US (occurrence: US)
  Receive Date: 20150605
  Receipt Date: 20151029
  Transmission Date: 20160304
  Serious: Yes (Death, Other)
  Sender: FDA-Public Use
  Company Number: US-GLAXOSMITHKLINE-US2015074999

PATIENT
  Age: 0 Year
  Sex: Female
  Weight: 2.86 kg

DRUGS (5)
  1. VALTREX [Suspect]
     Active Substance: VALACYCLOVIR HYDROCHLORIDE
     Dosage: UNK
     Route: 064
     Dates: start: 201401
  2. EPIDURAL [Concomitant]
     Indication: DELIVERY
     Dosage: UNK
     Route: 064
     Dates: start: 20140307, end: 20140307
  3. HEPATITIS B VACCINE [Suspect]
     Active Substance: HEPATITIS B VIRUS VACCINE
     Indication: PROPHYLAXIS
     Dates: start: 20140307, end: 20140307
  4. ZOFRAN [Suspect]
     Active Substance: ONDANSETRON HYDROCHLORIDE
     Indication: NAUSEA
     Dosage: 4 MG, UNK
     Route: 064
     Dates: start: 2013, end: 20140307
  5. ZOFRAN [Suspect]
     Active Substance: ONDANSETRON HYDROCHLORIDE
     Indication: VOMITING

REACTIONS (10)
  - Respiratory distress [Unknown]
  - Cardiac murmur [Unknown]
  - Shock [Fatal]
  - Hypotension [Unknown]
  - Exposure during pregnancy [Unknown]
  - Tachycardia [Unknown]
  - Cardiomyopathy [Fatal]
  - Metabolic acidosis [Unknown]
  - Labelled drug-drug interaction medication error [Unknown]
  - Sepsis [Unknown]

NARRATIVE: CASE EVENT DATE: 2013
